FAERS Safety Report 10190986 (Version 1)
Quarter: 2014Q2

REPORT INFORMATION
  Report Type: Spontaneous
  Country: US (occurrence: US)
  Receive Date: 20140523
  Receipt Date: 20140523
  Transmission Date: 20141212
  Serious: Yes (Other)
  Sender: FDA-Public Use
  Company Number: US-JNJFOC-20140509443

PATIENT
  Age: 79 Year
  Sex: Male
  Weight: 112.49 kg

DRUGS (13)
  1. XARELTO [Suspect]
     Indication: CEREBROVASCULAR ACCIDENT PROPHYLAXIS
     Route: 048
  2. XARELTO [Suspect]
     Indication: CEREBROVASCULAR ACCIDENT PROPHYLAXIS
     Route: 048
  3. XARELTO [Suspect]
     Indication: ATRIAL FIBRILLATION
     Route: 048
  4. XARELTO [Suspect]
     Indication: ATRIAL FIBRILLATION
     Route: 048
  5. ALLOPURINOL [Concomitant]
     Indication: GOUT
     Dosage: YEARS AGO
     Route: 048
  6. LEVOTHYROXINE [Concomitant]
     Indication: HYPOTHYROIDISM
     Dosage: 112 YEARS AGO
     Route: 048
  7. CARVEDILOL [Concomitant]
     Indication: CARDIAC DISORDER
     Dosage: 15 YEARS AGO
     Route: 048
  8. BENAZEPRIL [Concomitant]
     Indication: BLOOD PRESSURE
     Dosage: FEW YEARS AGO
     Route: 048
  9. SERTRALINE [Concomitant]
     Indication: ANXIETY
     Route: 048
  10. ATORVASTATIN [Concomitant]
     Indication: CARDIAC DISORDER
     Route: 048
     Dates: start: 20131210
  11. RESTASIS [Concomitant]
     Indication: DRY EYE
     Dosage: 1 DROP EACH EYE (2-3 YEARS AGO)
     Route: 065
  12. SYSTANE [Concomitant]
     Indication: DRY EYE
     Dosage: 1 DROP EACH EYE (2-3 YEARS AGO)
     Route: 065
  13. ECOTRIN [Concomitant]
     Indication: COAGULOPATHY
     Dosage: MONDAY, WEDNESDAY AND FRIDAY (1.5 YEARS AGO)
     Route: 065

REACTIONS (2)
  - Haematuria [Not Recovered/Not Resolved]
  - Eye haemorrhage [Unknown]
